FAERS Safety Report 24628500 (Version 1)
Quarter: 2024Q4

REPORT INFORMATION
  Report Type: Spontaneous
  Country: CN (occurrence: CN)
  Receive Date: 20241117
  Receipt Date: 20241117
  Transmission Date: 20250115
  Serious: Yes (Other)
  Sender: SANDOZ
  Company Number: CN-002147023-NVSC2024CN220388

PATIENT

DRUGS (5)
  1. OLOPATADINE HYDROCHLORIDE [Suspect]
     Active Substance: OLOPATADINE HYDROCHLORIDE
     Indication: Conjunctivitis allergic
     Dosage: UNK
     Route: 065
  2. TOBRAMYCIN [Suspect]
     Active Substance: TOBRAMYCIN\TOBRAMYCIN SULFATE
     Indication: Conjunctivitis allergic
     Dosage: UNK
     Route: 065
  3. EMADINE [Concomitant]
     Active Substance: EMEDASTINE DIFUMARATE
     Indication: Conjunctivitis allergic
     Dosage: UNK (DROPPED 5-6 DAYS)
     Route: 065
  4. FLUOROMETHOLONE [Concomitant]
     Active Substance: FLUOROMETHOLONE
     Indication: Conjunctivitis allergic
     Dosage: UNK (DROPPED THE FIRST 3 DAYS)
     Route: 065
  5. PRANOPROFEN [Concomitant]
     Active Substance: PRANOPROFEN
     Indication: Conjunctivitis allergic
     Dosage: UNK
     Route: 065

REACTIONS (3)
  - Corneal exfoliation [Unknown]
  - Eye pruritus [Unknown]
  - Drug ineffective [Unknown]
